FAERS Safety Report 8018052-9 (Version None)
Quarter: 2012Q1

REPORT INFORMATION
  Report Type: 
  Country: None (occurrence: None)
  Receive Date: 20120103
  Receipt Date: 20111228
  Transmission Date: 20120608
  Serious: Yes (Other)
  Sender: FDA-Public Use
  Company Number: JP-JNJFOC-20111111901

PATIENT
  Sex: Female
  Weight: 71 kg

DRUGS (3)
  1. REMICADE [Suspect]
     Dosage: THIS WAS THE PATIENT'S 5TH ADMINISTRATION
     Route: 042
     Dates: start: 20111027
  2. REMICADE [Suspect]
     Indication: PSORIASIS
     Route: 042
     Dates: start: 20110901
  3. REMICADE [Suspect]
     Route: 042
     Dates: start: 20110526

REACTIONS (5)
  - LUPUS-LIKE SYNDROME [None]
  - ARTHRALGIA [None]
  - MUSCULOSKELETAL STIFFNESS [None]
  - MYALGIA [None]
  - PYREXIA [None]
